FAERS Safety Report 5534228-4 (Version None)
Quarter: 2007Q4

REPORT INFORMATION
  Report Type: 
  Country: None (occurrence: None)
  Receive Date: 20071205
  Receipt Date: 20071116
  Transmission Date: 20080405
  Serious: No
  Sender: FDA-Public Use
  Company Number: US-BAYER-200714786NA

PATIENT
  Sex: Female

DRUGS (1)
  1. YAZ [Suspect]
     Indication: UNEVALUABLE EVENT
     Route: 048

REACTIONS (3)
  - CONTACT LENS INTOLERANCE [None]
  - OCULAR HYPERAEMIA [None]
  - VISION BLURRED [None]
